FAERS Safety Report 5408769-4 (Version None)
Quarter: 2007Q3

REPORT INFORMATION
  Report Type: 
  Country: None (occurrence: None)
  Receive Date: 20070808
  Receipt Date: 20070730
  Transmission Date: 20080115
  Serious: Yes (Life-Threatening, Hospitalization)
  Sender: FDA-Public Use
  Company Number: GB-AMGEN-US210109

PATIENT
  Sex: Male
  Weight: 68.5 kg

DRUGS (10)
  1. ENBREL [Suspect]
     Indication: RHEUMATOID ARTHRITIS
     Route: 058
     Dates: start: 20060301
  2. METHOTREXATE SODIUM [Concomitant]
     Indication: RHEUMATOID ARTHRITIS
     Route: 048
     Dates: end: 20061121
  3. CALCIUM WITH VITAMIN D [Concomitant]
     Route: 048
     Dates: start: 20061101
  4. TRAMADOL HCL [Concomitant]
     Indication: RHEUMATOID ARTHRITIS
     Dosage: 50MG, AS NEEDED
     Route: 048
  5. RANITIDINE [Concomitant]
     Route: 048
     Dates: end: 20061101
  6. KETOPROFEN [Concomitant]
     Dosage: 25MG AM AND 75MG PM
     Route: 048
     Dates: end: 20061101
  7. INDOMETHACIN [Concomitant]
     Route: 048
  8. CALCICHEW [Concomitant]
     Route: 048
  9. FOLIC ACID [Concomitant]
     Route: 048
     Dates: end: 20061101
  10. SULFASALAZINE [Concomitant]
     Indication: RHEUMATOID ARTHRITIS
     Route: 048
     Dates: end: 20061101

REACTIONS (4)
  - DEHYDRATION [None]
  - HEADACHE [None]
  - HISTIOCYTOSIS HAEMATOPHAGIC [None]
  - PNEUMONIA [None]
